FAERS Safety Report 9247806 (Version 4)
Quarter: 2013Q4

REPORT INFORMATION
  Report Type: Spontaneous
  Country: JP (occurrence: JP)
  Receive Date: 20130423
  Receipt Date: 20131025
  Transmission Date: 20140711
  Serious: Yes (Death, Hospitalization, Other)
  Sender: FDA-Public Use
  Company Number: JP-MPIJNJ-2013-02645

PATIENT
  Sex: 0

DRUGS (10)
  1. VELCADE [Suspect]
     Indication: PLASMA CELL LEUKAEMIA
     Dosage: UNK
     Route: 042
     Dates: start: 2010
  2. VELCADE [Suspect]
     Dosage: UNK
     Route: 042
     Dates: start: 201107
  3. VELCADE [Suspect]
     Dosage: 1.3 MG/M2, UNK
     Route: 042
     Dates: start: 201211, end: 201301
  4. REVLIMID [Suspect]
     Indication: PLASMA CELL LEUKAEMIA
     Dosage: UNK
     Route: 048
     Dates: start: 201010
  5. REVLIMID [Suspect]
     Dosage: UNK
     Route: 048
     Dates: start: 201108
  6. REVLIMID [Suspect]
     Dosage: 25 MG, UNK
     Route: 048
     Dates: start: 201211, end: 201301
  7. DEXAMETHASONE [Suspect]
     Indication: PLASMA CELL LEUKAEMIA
     Dosage: UNK
     Route: 065
     Dates: start: 2012, end: 201301
  8. DOXORUBICIN HYDROCHLORIDE [Concomitant]
     Indication: PLASMA CELL LEUKAEMIA
     Dosage: UNK
     Dates: start: 2010
  9. DOXORUBICIN HYDROCHLORIDE [Concomitant]
     Dosage: UNK
     Dates: start: 201107
  10. CYCLOPHOSPHAMIDE [Concomitant]
     Indication: PLASMA CELL LEUKAEMIA
     Dosage: UNK
     Dates: start: 201108

REACTIONS (3)
  - Progressive multifocal leukoencephalopathy [Fatal]
  - Plasma cell leukaemia [Fatal]
  - Off label use [Unknown]
